FAERS Safety Report 8595369-0 (Version None)
Quarter: 2012Q3

REPORT INFORMATION
  Report Type: 
  Country: None (occurrence: None)
  Receive Date: 20120807
  Receipt Date: 20120807
  Transmission Date: 20120928
  Serious: No
  Sender: FDA-Public Use
  Company Number: None

PATIENT
  Age: 80 Year
  Sex: Female
  Weight: 58.2 kg

DRUGS (7)
  1. ISOVUE-300 [Suspect]
     Indication: COMPUTERISED TOMOGRAM
     Dosage: IV
     Dates: start: 20120403
  2. ERLOTINIB HYDROCHLORIDE [Concomitant]
  3. AMLODIPINE [Concomitant]
  4. ROSUVAST [Concomitant]
  5. OLMESARTAN MEDOXOMIL AND HYDROCHLOROTHIZIDE [Concomitant]
  6. DOXYCYCINE [Concomitant]
  7. HYDROCORTISONE [Concomitant]

REACTIONS (3)
  - VOMITING [None]
  - FLUSHING [None]
  - NAUSEA [None]
